FAERS Safety Report 8073026-7 (Version None)
Quarter: 2011Q4

REPORT INFORMATION
  Report Type: 
  Country: None (occurrence: None)
  Receive Date: 20111221
  Receipt Date: 20110801
  Transmission Date: 20120403
  Serious: Yes (Other)
  Sender: FDA-Public Use
  Company Number: PHHY2009US56868

PATIENT
  Age: 41 Year
  Sex: Male
  Weight: 71.1 kg

DRUGS (1)
  1. EXJADE [Suspect]
     Indication: HODGKIN'S DISEASE
     Dosage: 1500 MG, DAILY, ORAL
     Route: 048

REACTIONS (2)
  - RENAL DISORDER [None]
  - BLOOD CREATININE INCREASED [None]
